FAERS Safety Report 4316757-4 (Version None)
Quarter: 2004Q1

REPORT INFORMATION
  Report Type: 
  Country: None (occurrence: None)
  Receive Date: 20040311
  Receipt Date: 20040302
  Transmission Date: 20041129
  Serious: Yes (Disabling, Other)
  Sender: FDA-Public Use
  Company Number: AE-304-049

PATIENT
  Age: 72 Year
  Sex: Female

DRUGS (4)
  1. LIDODERM [Suspect]
     Indication: BACK PAIN
     Dosage: 1 PATCHES A DAY
     Route: 062
  2. VIOXX [Concomitant]
  3. PREMARIN [Concomitant]
  4. ASPIRIN [Concomitant]

REACTIONS (3)
  - ABASIA [None]
  - LIMB INJURY [None]
  - NERVE INJURY [None]
